FAERS Safety Report 13476117 (Version 2)
Quarter: 2017Q2

REPORT INFORMATION
  Report Type: Spontaneous
  Country: US (occurrence: US)
  Receive Date: 20170425
  Receipt Date: 20170425
  Transmission Date: 20170830
  Serious: No
  Sender: FDA-Public Use
  Company Number: US-TEVA-762987ACC

PATIENT
  Age: 40 Year
  Sex: Female
  Weight: 78.09 kg

DRUGS (1)
  1. PARAGARD T 380A [Suspect]
     Active Substance: COPPER
     Indication: CONTRACEPTION
     Dates: start: 20170418, end: 20170418

REACTIONS (2)
  - Dysmenorrhoea [Unknown]
  - Cervical polyp [Not Recovered/Not Resolved]

NARRATIVE: CASE EVENT DATE: 20170418
